FAERS Safety Report 12525597 (Version 3)
Quarter: 2016Q4

REPORT INFORMATION
  Report Type: Spontaneous
  Country: US (occurrence: US)
  Receive Date: 20160705
  Receipt Date: 20161115
  Transmission Date: 20170207
  Serious: No
  Sender: FDA-Public Use
  Company Number: US-JNJFOC-20160505857

PATIENT
  Sex: Male
  Weight: 108.86 kg

DRUGS (5)
  1. INVEGA SUSTENNA [Suspect]
     Active Substance: PALIPERIDONE PALMITATE
     Indication: BIPOLAR DISORDER
     Route: 030
     Dates: start: 201602
  2. INVEGA SUSTENNA [Suspect]
     Active Substance: PALIPERIDONE PALMITATE
     Indication: BIPOLAR DISORDER
     Route: 030
     Dates: start: 2012, end: 201602
  3. INVEGA TRINZA [Suspect]
     Active Substance: PALIPERIDONE PALMITATE
     Indication: PRODUCT USED FOR UNKNOWN INDICATION
     Route: 030
  4. INVEGA [Suspect]
     Active Substance: PALIPERIDONE
     Indication: BIPOLAR DISORDER
     Route: 048
     Dates: start: 2012, end: 2012
  5. LITHIUM. [Concomitant]
     Active Substance: LITHIUM
     Indication: BIPOLAR DISORDER
     Route: 065

REACTIONS (11)
  - Poor quality sleep [Not Recovered/Not Resolved]
  - Agitation [Not Recovered/Not Resolved]
  - Adverse event [Unknown]
  - Aggression [Not Recovered/Not Resolved]
  - Restlessness [Not Recovered/Not Resolved]
  - Stress [Recovered/Resolved]
  - Wrong drug administered [Unknown]
  - Drug ineffective [Unknown]
  - Anxiety [Recovered/Resolved]
  - Delusion [Not Recovered/Not Resolved]
  - Hypersomnia [Not Recovered/Not Resolved]

NARRATIVE: CASE EVENT DATE: 2012
